FAERS Safety Report 21988650 (Version 1)
Quarter: 2023Q1

REPORT INFORMATION
  Report Type: Spontaneous
  Country: KR (occurrence: KR)
  Receive Date: 20230214
  Receipt Date: 20230214
  Transmission Date: 20230418
  Serious: Yes (Other)
  Sender: FDA-Public Use
  Company Number: None

PATIENT
  Age: 6 Month
  Sex: Male

DRUGS (4)
  1. LINEZOLID [Suspect]
     Active Substance: LINEZOLID
     Indication: Enterococcal infection
     Dosage: 30 MILLIGRAM/KILOGRAM, QD
     Route: 065
  2. DOXYCYCLINE [Concomitant]
     Active Substance: DOXYCYCLINE
     Indication: Enterococcal infection
     Dosage: UNK
     Route: 065
  3. ERTAPENEM [Concomitant]
     Active Substance: ERTAPENEM
     Indication: Enterococcal infection
     Dosage: UNK
     Route: 065
  4. RIFAMPIN [Concomitant]
     Active Substance: RIFAMPIN
     Indication: Enterococcal infection
     Dosage: UNK
     Route: 065

REACTIONS (1)
  - Neuropathy peripheral [Recovered/Resolved]
